FAERS Safety Report 19021214 (Version 1)
Quarter: 2021Q1

REPORT INFORMATION
  Report Type: Spontaneous
  Country: JP (occurrence: JP)
  Receive Date: 20210317
  Receipt Date: 20210317
  Transmission Date: 20210420
  Serious: No
  Sender: FDA-Public Use
  Company Number: JP-ALLERGAN-2111090US

PATIENT
  Sex: Male

DRUGS (1)
  1. ASENAPINE MALEATE ? BP [Suspect]
     Active Substance: ASENAPINE MALEATE
     Indication: PRODUCT USED FOR UNKNOWN INDICATION
     Dosage: 10 MG, BID
     Route: 060
     Dates: start: 20210303

REACTIONS (7)
  - Nausea [Unknown]
  - Paraesthesia oral [Unknown]
  - Dyspnoea [Unknown]
  - Dizziness [Unknown]
  - Poor quality sleep [Unknown]
  - Depressed level of consciousness [Unknown]
  - Headache [Unknown]

NARRATIVE: CASE EVENT DATE: 2021
